FAERS Safety Report 4475335-7 (Version None)
Quarter: 2004Q4

REPORT INFORMATION
  Report Type: 
  Country: None (occurrence: None)
  Receive Date: 20041013
  Receipt Date: 20041013
  Transmission Date: 20050328
  Serious: Yes (Hospitalization, Other)
  Sender: FDA-Public Use
  Company Number: None

PATIENT
  Age: 77 Year
  Sex: Male
  Weight: 82 kg

DRUGS (5)
  1. WARFARIN [Suspect]
     Indication: ATRIAL FIBRILLATION
     Dosage: 5 MG ALT 2.5 MG PO DAILY
     Route: 048
  2. ARICEPT [Concomitant]
  3. COUMADIN [Concomitant]
  4. LASIX [Concomitant]
  5. ALDACTONE [Concomitant]

REACTIONS (7)
  - ASCITES [None]
  - CONFUSIONAL STATE [None]
  - DRUG LEVEL INCREASED [None]
  - GASTRIC DISORDER [None]
  - INTERNATIONAL NORMALISED RATIO INCREASED [None]
  - UPPER GASTROINTESTINAL HAEMORRHAGE [None]
  - VARICOSE VEIN [None]
